FAERS Safety Report 17964690 (Version 1)
Quarter: 2020Q2

REPORT INFORMATION
  Report Type: Spontaneous
  Country: DK (occurrence: DK)
  Receive Date: 20200630
  Receipt Date: 20200630
  Transmission Date: 20200714
  Serious: Yes (Hospitalization, Disabling, Other)
  Sender: FDA-Public Use
  Company Number: DK-BAXTER-2020BAX012089

PATIENT
  Age: 51 Year
  Sex: Female

DRUGS (8)
  1. METRONIDAZOLE. [Suspect]
     Active Substance: METRONIDAZOLE
     Indication: INFECTION
     Route: 048
     Dates: start: 20111024, end: 20111031
  2. ANTABUS [Suspect]
     Active Substance: DISULFIRAM
     Indication: ALCOHOL ABUSE
     Route: 048
     Dates: start: 201108
  3. PENICILLIN [Suspect]
     Active Substance: PENICILLIN
     Indication: INFECTION PROPHYLAXIS
     Route: 042
     Dates: start: 20111011, end: 20111011
  4. METRONIDAZOL BAXTER VIAFLO [Suspect]
     Active Substance: METRONIDAZOLE
     Indication: INFECTION PROPHYLAXIS
     Dosage: TOTAL OF 6 TIMES
     Route: 042
     Dates: start: 20111011, end: 20111011
  5. GABAPENTIN. [Suspect]
     Active Substance: GABAPENTIN
     Indication: NEURALGIA
     Route: 065
  6. VITAMIN B [Suspect]
     Active Substance: VITAMIN B
     Indication: NEURALGIA
     Route: 065
  7. VEPICOMBIN NOVUM [Concomitant]
     Active Substance: PENICILLIN V POTASSIUM
     Indication: INFECTION
     Route: 048
     Dates: start: 20111024, end: 20111031
  8. CIPRAMIL [Concomitant]
     Indication: DEPRESSION
     Route: 065
     Dates: start: 2009

REACTIONS (4)
  - Small fibre neuropathy [Not Recovered/Not Resolved]
  - Localised infection [Unknown]
  - Suicidal ideation [Unknown]
  - Suicide attempt [Unknown]

NARRATIVE: CASE EVENT DATE: 201111
